FAERS Safety Report 24090277 (Version 1)
Quarter: 2024Q3

REPORT INFORMATION
  Report Type: Report from Study
  Country: CA (occurrence: CA)
  Receive Date: 20240715
  Receipt Date: 20240715
  Transmission Date: 20241017
  Serious: Yes (Hospitalization)
  Sender: ACCORD
  Company Number: None

PATIENT
  Age: 46 Year
  Sex: Female

DRUGS (8)
  1. METHOTREXATE [Suspect]
     Active Substance: METHOTREXATE
     Indication: Product used for unknown indication
  2. UPADACITINIB [Suspect]
     Active Substance: UPADACITINIB
     Indication: Ankylosing spondylitis
     Dosage: TABLET (EXTENDED- RELEASE)
     Route: 048
  3. BIOTIN [Concomitant]
     Active Substance: BIOTIN
     Indication: Product used for unknown indication
     Route: 065
  4. DICLOFENAC [Concomitant]
     Active Substance: DICLOFENAC
     Indication: Product used for unknown indication
     Route: 065
  5. ERGOCALCIFEROL [Concomitant]
     Active Substance: ERGOCALCIFEROL
     Indication: Product used for unknown indication
     Route: 065
  6. MORPHINE [Concomitant]
     Active Substance: MORPHINE
     Indication: Product used for unknown indication
     Route: 065
  7. SYNTHROID [Concomitant]
     Active Substance: LEVOTHYROXINE SODIUM
     Indication: Product used for unknown indication
     Route: 065
  8. UPADACITINIB [Suspect]
     Active Substance: UPADACITINIB
     Indication: Ankylosing spondylitis
     Route: 048

REACTIONS (7)
  - Influenza [Not Recovered/Not Resolved]
  - Chest pain [Not Recovered/Not Resolved]
  - Faeces discoloured [Not Recovered/Not Resolved]
  - Heart rate increased [Not Recovered/Not Resolved]
  - Pyrexia [Not Recovered/Not Resolved]
  - Sinusitis [Not Recovered/Not Resolved]
  - Hepatic pain [Not Recovered/Not Resolved]
